FAERS Safety Report 11908355 (Version 1)
Quarter: 2016Q1

REPORT INFORMATION
  Report Type: Spontaneous
  Country: LK (occurrence: LK)
  Receive Date: 20160111
  Receipt Date: 20160111
  Transmission Date: 20160526
  Serious: Yes (Other)
  Sender: FDA-Public Use
  Company Number: PHHY2015LK171871

PATIENT
  Age: 59 Year
  Sex: Male

DRUGS (2)
  1. WARFARIN [Suspect]
     Active Substance: WARFARIN
     Indication: CARDIAC ANEURYSM
     Route: 065
  2. WARFARIN [Suspect]
     Active Substance: WARFARIN
     Indication: LEFT VENTRICULAR DYSFUNCTION

REACTIONS (3)
  - Haemosiderosis [Recovering/Resolving]
  - Haematuria [Recovering/Resolving]
  - Haemoptysis [Recovering/Resolving]
